FAERS Safety Report 5129374-3 (Version None)
Quarter: 2006Q4

REPORT INFORMATION
  Report Type: 
  Country: None (occurrence: None)
  Receive Date: 20061012
  Receipt Date: 20060929
  Transmission Date: 20070319
  Serious: Yes (Other)
  Sender: FDA-Public Use
  Company Number: 2006109364

PATIENT
  Age: 73 Year
  Sex: Male
  Weight: 90 kg

DRUGS (1)
  1. GLIPIZIDE [Suspect]
     Dosage: 1/2 DOSE FORM (2 IN 1 D)
     Dates: start: 20021008

REACTIONS (2)
  - HAEMOGLOBIN DECREASED [None]
  - RENAL FAILURE [None]
